FAERS Safety Report 5105885-1 (Version None)
Quarter: 2006Q3

REPORT INFORMATION
  Report Type: 
  Country: None (occurrence: None)
  Receive Date: 20060915
  Receipt Date: 20060906
  Transmission Date: 20061208
  Serious: Yes (Hospitalization)
  Sender: FDA-Public Use
  Company Number: FR-GLAXOSMITHKLINE-B0438196A

PATIENT
  Age: 60 Year
  Sex: Male

DRUGS (7)
  1. ALKERAN [Suspect]
     Indication: MULTIPLE MYELOMA
     Dosage: 200MG PER DAY
     Route: 048
     Dates: start: 20060807, end: 20060810
  2. SOLUPRED [Concomitant]
     Route: 065
  3. TOCO 500 [Concomitant]
     Route: 065
  4. DIFFU K [Concomitant]
     Route: 065
  5. DEBRIDAT [Concomitant]
     Route: 065
  6. DI ANTALVIC [Concomitant]
     Route: 065
  7. ZOMETA [Concomitant]
     Route: 042
     Dates: start: 20060727, end: 20060727

REACTIONS (3)
  - DIARRHOEA HAEMORRHAGIC [None]
  - GLOSSITIS [None]
  - OESOPHAGITIS [None]
